FAERS Safety Report 9849442 (Version 1)
Quarter: 2014Q1

REPORT INFORMATION
  Report Type: Report from Study
  Country: CN (occurrence: CN)
  Receive Date: 20140128
  Receipt Date: 20140128
  Transmission Date: 20141002
  Serious: Yes (Hospitalization)
  Sender: FDA-Public Use
  Company Number: CN-SA-2014SA009176

PATIENT
  Age: 59 Year
  Sex: Male

DRUGS (6)
  1. DOCETAXEL [Suspect]
     Indication: PROSTATE CANCER METASTATIC
     Route: 065
     Dates: start: 20120927, end: 20120927
  2. DOCETAXEL [Suspect]
     Indication: PROSTATE CANCER METASTATIC
     Route: 065
     Dates: start: 20121111, end: 20121111
  3. ETAMSYLATE [Concomitant]
     Route: 042
     Dates: start: 20121129, end: 20121206
  4. VITAMIN C [Concomitant]
     Route: 042
     Dates: start: 20121129, end: 20121206
  5. NORADRENALINE [Concomitant]
     Dosage: ROUTE; GARGLE
     Dates: start: 20121129, end: 20121206
  6. ALL OTHER THERAPEUTIC PRODUCTS [Concomitant]
     Dosage: ROUTE: SKIN POP
     Dates: start: 20121129, end: 20121212

REACTIONS (1)
  - Coagulopathy [Not Recovered/Not Resolved]
